FAERS Safety Report 7894314-0 (Version None)
Quarter: 2011Q4

REPORT INFORMATION
  Report Type: 
  Country: None (occurrence: None)
  Receive Date: 20111104
  Receipt Date: 20111017
  Transmission Date: 20120403
  Serious: No
  Sender: FDA-Public Use
  Company Number: CZ-ELI_LILLY_AND_COMPANY-CZ200908003946

PATIENT
  Sex: Male

DRUGS (2)
  1. RISPERDAL [Concomitant]
     Indication: ATTENTION DEFICIT/HYPERACTIVITY DISORDER
     Dosage: 0.25 MG, 3/D
     Route: 048
     Dates: start: 20090216, end: 20090521
  2. STRATTERA [Suspect]
     Indication: ATTENTION DEFICIT/HYPERACTIVITY DISORDER
     Dosage: 10 MG, DAILY (1/D)
     Route: 048
     Dates: start: 20090216, end: 20090521

REACTIONS (1)
  - ELECTROCARDIOGRAM QT PROLONGED [None]
